FAERS Safety Report 11683614 (Version 2)
Quarter: 2015Q4

REPORT INFORMATION
  Report Type: Spontaneous
  Country: NL (occurrence: NL)
  Receive Date: 20151029
  Receipt Date: 20151214
  Transmission Date: 20160304
  Serious: Yes (Hospitalization)
  Sender: FDA-Public Use
  Company Number: NL-TOLMAR, INC.-2015NL009583

PATIENT
  Sex: Male

DRUGS (7)
  1. ELIGARD [Suspect]
     Active Substance: LEUPROLIDE ACETATE
     Dosage: 1 DF, PER 6 MONTHS
     Route: 058
     Dates: start: 20151023
  2. ASCAL                              /00002702/ [Concomitant]
     Active Substance: ASPIRIN CALCIUM
     Route: 065
  3. CALCI-CHEW [Concomitant]
     Route: 065
  4. ELIGARD [Suspect]
     Active Substance: LEUPROLIDE ACETATE
     Indication: PROSTATE CANCER
     Dosage: 1 DF, PER 6 MONTHS
     Route: 058
     Dates: start: 20141023
  5. ELIGARD [Suspect]
     Active Substance: LEUPROLIDE ACETATE
     Dosage: 1 DF, PER 6 MONTHS
     Route: 058
     Dates: start: 20150422
  6. OMEPRAZOLE. [Concomitant]
     Active Substance: OMEPRAZOLE
     Route: 065
  7. DUTASTERIDE. [Concomitant]
     Active Substance: DUTASTERIDE
     Route: 065

REACTIONS (1)
  - Hormone-refractory prostate cancer [Unknown]
